FAERS Safety Report 9741378 (Version 2)
Quarter: 2014Q1

REPORT INFORMATION
  Report Type: Spontaneous
  Country: US (occurrence: US)
  Receive Date: 20131209
  Receipt Date: 20140117
  Transmission Date: 20141002
  Serious: Yes (Hospitalization, Other)
  Sender: FDA-Public Use
  Company Number: US-GILEAD-2013-0089292

PATIENT
  Sex: Female

DRUGS (2)
  1. LETAIRIS [Suspect]
     Indication: PULMONARY HYPERTENSION
     Dosage: 10 MG, QD
     Dates: start: 20130109
  2. LETAIRIS [Suspect]
     Indication: CREST SYNDROME

REACTIONS (4)
  - Enteritis infectious [Unknown]
  - Blood potassium increased [Unknown]
  - Blood magnesium increased [Unknown]
  - Dehydration [Unknown]
